FAERS Safety Report 10668676 (Version 1)
Quarter: 2014Q4

REPORT INFORMATION
  Report Type: Spontaneous
  Country: US (occurrence: None)
  Receive Date: 20141217
  Receipt Date: 20141217
  Transmission Date: 20150529
  Serious: No
  Sender: FDA-Public Use
  Company Number: 2014CT000105

PATIENT
  Age: 40 Year
  Sex: Female
  Weight: 77.11 kg

DRUGS (8)
  1. EPLERENONE. [Concomitant]
     Active Substance: EPLERENONE
  2. SIMVASTATIN. [Concomitant]
     Active Substance: SIMVASTATIN
  3. DIURETICS AND POTASSIUM-SPARING AGENTS IN COM [Concomitant]
  4. SYNTHROID [Concomitant]
     Active Substance: LEVOTHYROXINE SODIUM
  5. VICTOZA [Concomitant]
     Active Substance: LIRAGLUTIDE
  6. CELEXA [Concomitant]
     Active Substance: CITALOPRAM HYDROBROMIDE
  7. KORLYM [Suspect]
     Active Substance: MIFEPRISTONE
     Indication: CUSHING^S SYNDROME
     Route: 048
     Dates: start: 20140728
  8. KLONOPIN [Concomitant]
     Active Substance: CLONAZEPAM

REACTIONS (8)
  - Nausea [None]
  - Headache [None]
  - Fatigue [None]
  - Oedema peripheral [None]
  - Rash [None]
  - Insomnia [None]
  - Chills [None]
  - Tremor [None]

NARRATIVE: CASE EVENT DATE: 20140728
